FAERS Safety Report 7044081-8 (Version None)
Quarter: 2010Q4

REPORT INFORMATION
  Report Type: 
  Country: None (occurrence: None)
  Receive Date: 20101013
  Receipt Date: 20101005
  Transmission Date: 20110411
  Serious: Yes (Hospitalization, Disabling, Other)
  Sender: FDA-Public Use
  Company Number: DE-PFIZER INC-2010126506

PATIENT
  Age: 7 Year
  Sex: Male

DRUGS (2)
  1. SOMATROPIN [Suspect]
     Indication: GROWTH HORMONE DEFICIENCY
     Dosage: 0.6 MG, 1X/DAY
     Dates: start: 20090811
  2. SOMATROPIN [Suspect]
     Dosage: UNK
     Dates: start: 20100322

REACTIONS (2)
  - CONDITION AGGRAVATED [None]
  - CRANIOPHARYNGIOMA [None]
